FAERS Safety Report 4746813-8 (Version None)
Quarter: 2005Q3

REPORT INFORMATION
  Report Type: 
  Country: None (occurrence: None)
  Receive Date: 20050817
  Receipt Date: 20040727
  Transmission Date: 20060218
  Serious: Yes (Other)
  Sender: FDA-Public Use
  Company Number: JP-ROCHE-376072

PATIENT
  Age: 75 Year
  Sex: Male

DRUGS (8)
  1. PEG-INTERFERON ALFA 2A (RO 25-8310) [Suspect]
     Route: 058
     Dates: start: 20040307, end: 20040313
  2. PEG-INTERFERON ALFA 2A (RO 25-8310) [Suspect]
     Route: 058
     Dates: start: 20040320, end: 20040601
  3. MIRADOL (SULPIRIDE) [Suspect]
     Indication: DEPRESSION
     Dosage: FORM:ORAL FORMULATION (NOS)
     Route: 048
     Dates: start: 20040330, end: 20040802
  4. LUDIOMIL [Suspect]
     Indication: DEPRESSION
     Route: 048
     Dates: start: 20040608, end: 20040802
  5. URSODIOL [Concomitant]
     Indication: HEPATITIS C
     Dosage: TAKEN BEFORE START OF PEG-INTERFERON ALFA 2A.
     Route: 048
  6. AMLODIN [Concomitant]
     Route: 048
  7. NEO-MINOPHAGEN C [Concomitant]
     Dosage: ROUTE: INJECTABLE (NOS)
     Route: 050
  8. MAGNESIUM OXIDE [Concomitant]
     Dosage: DRUG NAME REPORTED AS MAGLAX. TAKEN AS NEEDED.
     Route: 048

REACTIONS (5)
  - DEPRESSION [None]
  - DRUG INEFFECTIVE [None]
  - INSOMNIA [None]
  - PARKINSONISM [None]
  - PLATELET COUNT DECREASED [None]
